FAERS Safety Report 5522883-4 (Version None)
Quarter: 2007Q4

REPORT INFORMATION
  Report Type: 
  Country: None (occurrence: None)
  Receive Date: 20071116
  Receipt Date: 20071107
  Transmission Date: 20080405
  Serious: Yes (Hospitalization, Other)
  Sender: FDA-Public Use
  Company Number: 2007AL004713

PATIENT
  Age: 74 Year
  Sex: Female
  Weight: 68.0396 kg

DRUGS (5)
  1. PREMETHRIN                   CREAM [Suspect]
     Indication: ACARODERMATITIS
     Dosage: TOP
     Route: 061
     Dates: start: 20070101, end: 20070801
  2. ALBUTEROL [Concomitant]
  3. ATROVENT [Concomitant]
  4. LIPITOR [Concomitant]
  5. OVAR [Concomitant]

REACTIONS (6)
  - DYSPNOEA [None]
  - HYPOAESTHESIA [None]
  - PARAESTHESIA [None]
  - PRURITUS [None]
  - RASH [None]
  - URTICARIA [None]
